FAERS Safety Report 16735205 (Version 1)
Quarter: 2019Q3

REPORT INFORMATION
  Report Type: Spontaneous
  Country: US (occurrence: US)
  Receive Date: 20190708
  Receipt Date: 20190708
  Transmission Date: 20191005
  Serious: Yes (Hospitalization)
  Sender: FDA-Public Use
  Company Number: None

PATIENT
  Age: 69 Year
  Sex: Male

DRUGS (1)
  1. AMIODARONE [Suspect]
     Active Substance: AMIODARONE
     Indication: ARRHYTHMIA
     Route: 048
     Dates: start: 20180203, end: 20190411

REACTIONS (3)
  - Pulmonary fibrosis [None]
  - Pulmonary toxicity [None]
  - Dyspnoea exertional [None]

NARRATIVE: CASE EVENT DATE: 20190309
